FAERS Safety Report 19583059 (Version 3)
Quarter: 2022Q3

REPORT INFORMATION
  Report Type: Spontaneous
  Country: BR (occurrence: BR)
  Receive Date: 20210719
  Receipt Date: 20220718
  Transmission Date: 20221027
  Serious: Yes (Disabling, Other)
  Sender: FDA-Public Use
  Company Number: BR-ABBVIE-21K-020-3996317-00

PATIENT
  Age: 62 Year
  Sex: Female

DRUGS (1)
  1. HUMIRA [Suspect]
     Active Substance: ADALIMUMAB
     Indication: Rheumatoid arthritis
     Dosage: THERAPY START DATE OF HUMIRA- BEFORE JUL 2020?UNSPECIFIED DOSE
     Route: 058

REACTIONS (9)
  - Eye disorder [Unknown]
  - Intraocular pressure increased [Unknown]
  - Impaired driving ability [Unknown]
  - Glaucoma [Recovering/Resolving]
  - Gait disturbance [Unknown]
  - Eye swelling [Unknown]
  - Exophthalmos [Unknown]
  - Basedow^s disease [Unknown]
  - Eye irritation [Unknown]
